FAERS Safety Report 4524092-4 (Version None)
Quarter: 2004Q4

REPORT INFORMATION
  Report Type: 
  Country: None (occurrence: None)
  Receive Date: 20041209
  Receipt Date: 20041115
  Transmission Date: 20050328
  Serious: Yes (Hospitalization, Other)
  Sender: FDA-Public Use
  Company Number: 2004094045

PATIENT
  Age: 73 Year
  Sex: Male
  Weight: 65 kg

DRUGS (5)
  1. BEXTRA [Suspect]
     Indication: COSTOCHONDRITIS
     Dosage: UNKNOWN (1 IN 1 D) ORAL
     Route: 048
     Dates: start: 20041027, end: 20041028
  2. ATENOLOL [Concomitant]
  3. SIMVASTATIN [Concomitant]
  4. TRAMADOL HCL [Concomitant]
  5. CODEINE PHOSPHATE AND ACETAMINOPHEN [Concomitant]

REACTIONS (1)
  - HEMIPLEGIA [None]
